FAERS Safety Report 9398388 (Version 1)
Quarter: 2013Q3

REPORT INFORMATION
  Report Type: Spontaneous
  Country: US (occurrence: US)
  Receive Date: 20130712
  Receipt Date: 20130712
  Transmission Date: 20140515
  Serious: No
  Sender: FDA-Public Use
  Company Number: US-GLAXOSMITHKLINE-A1014411A

PATIENT
  Age: 82 Year
  Sex: Female

DRUGS (2)
  1. FLOVENT [Suspect]
     Indication: EMPHYSEMA
     Route: 055
     Dates: start: 20130301, end: 20130301
  2. DIAZEPAM [Concomitant]

REACTIONS (2)
  - Dyspnoea [Not Recovered/Not Resolved]
  - Heart rate increased [Not Recovered/Not Resolved]
